FAERS Safety Report 8818894 (Version 1)
Quarter: 2012Q4

REPORT INFORMATION
  Report Type: Spontaneous
  Country: US (occurrence: None)
  Receive Date: 20121004
  Receipt Date: 20121004
  Transmission Date: 20130627
  Serious: Yes (Hospitalization)
  Sender: FDA-Public Use
  Company Number: None

PATIENT
  Age: 57 Year
  Sex: Female
  Weight: 70.31 kg

DRUGS (2)
  1. NEULASTA [Suspect]
     Indication: WBC INCREASED
     Dosage: 1 dose, 1x, sq
     Route: 058
     Dates: start: 20120928, end: 20120928
  2. NEULASTA [Suspect]
     Indication: CHEMOTHERAPY
     Dosage: 1 dose, 1x, sq
     Route: 058
     Dates: start: 20120928, end: 20120928

REACTIONS (14)
  - Bone pain [None]
  - Feeling abnormal [None]
  - Disturbance in attention [None]
  - Vision blurred [None]
  - Feeling abnormal [None]
  - Loss of consciousness [None]
  - Dyspnoea [None]
  - Wheezing [None]
  - Urinary incontinence [None]
  - Blood pressure decreased [None]
  - Pulse absent [None]
  - Tremor [None]
  - Dyskinesia [None]
  - Memory impairment [None]
